FAERS Safety Report 7145675-1 (Version None)
Quarter: 2010Q4

REPORT INFORMATION
  Report Type: 
  Country: None (occurrence: None)
  Receive Date: 20101123
  Receipt Date: 20101108
  Transmission Date: 20110411
  Serious: Yes (Death, Other)
  Sender: FDA-Public Use
  Company Number: JPI-P-012948

PATIENT
  Age: 26 Year
  Sex: Male

DRUGS (3)
  1. XYREM [Suspect]
     Indication: NARCOLEPSY
     Dosage: 4 GM (2 GM,2 IN 1 D),ORAL ; (TITRATING DOSE),ORAL ; 12 GM (6 GM,2 IN 1 D),ORAL
     Route: 048
     Dates: start: 20081027
  2. XYREM [Suspect]
     Indication: NARCOLEPSY
     Dosage: 4 GM (2 GM,2 IN 1 D),ORAL ; (TITRATING DOSE),ORAL ; 12 GM (6 GM,2 IN 1 D),ORAL
     Route: 048
     Dates: start: 20100930
  3. UNSPECIFIED INHALER [Concomitant]

REACTIONS (3)
  - CYANOSIS [None]
  - DYSPNOEA [None]
  - PALLOR [None]
